FAERS Safety Report 10086905 (Version 4)
Quarter: 2014Q2

REPORT INFORMATION
  Report Type: Report from Study
  Country: AU (occurrence: AU)
  Receive Date: 20140418
  Receipt Date: 20140516
  Transmission Date: 20141212
  Serious: Yes (Hospitalization)
  Sender: FDA-Public Use
  Company Number: PHHY2014AU042274

PATIENT
  Sex: Male

DRUGS (13)
  1. OXALIPLATIN [Suspect]
     Indication: GASTROOESOPHAGEAL CANCER
     Dosage: 165 MG, QW2
     Route: 042
     Dates: start: 20140103
  2. 5-FLUOROURACIL [Suspect]
     Indication: GASTROOESOPHAGEAL CANCER
     Dosage: 775 MG, QW2
     Route: 040
     Dates: start: 20140103
  3. 5-FLUOROURACIL [Suspect]
     Dosage: 4650 MG, QW2
     Route: 042
     Dates: start: 20140103
  4. FOLINIC ACID [Suspect]
     Indication: GASTROOESOPHAGEAL CANCER
     Dosage: 50 MG, QW2
     Route: 042
     Dates: start: 20140103
  5. PLACEBO [Suspect]
     Indication: GASTROOESOPHAGEAL CANCER
     Dosage: 1 DF, QW2
     Route: 042
     Dates: start: 20140103
  6. PREGABALIN [Concomitant]
     Indication: PAIN
     Route: 048
  7. HYDROMORPHONE HYDROCHLORIDE [Concomitant]
     Indication: PAIN
     Route: 048
  8. COLOXYL C SENNA [Concomitant]
     Indication: CONSTIPATION
     Dosage: 1 DF (50/8 MG)
     Dates: start: 20131230
  9. PARACETAMOL [Concomitant]
     Indication: PAIN
     Route: 048
     Dates: start: 20131109, end: 20140213
  10. PARACETAMOL [Concomitant]
  11. PANTOPRAZOLE [Concomitant]
     Indication: GASTRIC ULCER
     Dosage: 40 MG, UNK
     Route: 048
     Dates: start: 20131213
  12. PARACETAMOL CODEINE [Concomitant]
     Indication: PAIN
     Dosage: 1 DF, UNK
     Dates: start: 20131109, end: 20131224
  13. ENOXAPARIN SODIUM [Concomitant]
     Indication: PROPHYLAXIS
     Dosage: 40 MG, UNK
     Route: 058
     Dates: start: 20140112, end: 20140114

REACTIONS (1)
  - Pyrexia [Recovered/Resolved]
